FAERS Safety Report 17039102 (Version 1)
Quarter: 2019Q4

REPORT INFORMATION
  Report Type: Spontaneous
  Country: US (occurrence: US)
  Receive Date: 20191115
  Receipt Date: 20191115
  Transmission Date: 20200122
  Serious: No
  Sender: FDA-Public Use
  Company Number: US-SA-2019SA313521

PATIENT
  Age: 38 Year
  Sex: Female

DRUGS (7)
  1. ZYRTEC [Concomitant]
     Active Substance: CETIRIZINE HYDROCHLORIDE
  2. SINGULAIR [Concomitant]
     Active Substance: MONTELUKAST SODIUM
  3. SYNTHROID [Concomitant]
     Active Substance: LEVOTHYROXINE SODIUM
  4. DUPIXENT [Suspect]
     Active Substance: DUPILUMAB
     Indication: COLD URTICARIA
  5. BREO ELLIPTA [Concomitant]
     Active Substance: FLUTICASONE FUROATE\VILANTEROL TRIFENATATE
  6. VENTOLIN HFA [Concomitant]
     Active Substance: ALBUTEROL SULFATE
  7. DUPIXENT [Suspect]
     Active Substance: DUPILUMAB
     Indication: URTICARIA THERMAL
     Dosage: 300 MG, QOW
     Route: 058
     Dates: start: 20190301

REACTIONS (2)
  - Product use in unapproved indication [Unknown]
  - Bronchitis [Unknown]

NARRATIVE: CASE EVENT DATE: 20190301
